FAERS Safety Report 8918039 (Version 1)
Quarter: 2012Q4

REPORT INFORMATION
  Report Type: 
  Country: US (occurrence: US)
  Receive Date: 20121120
  Receipt Date: 20121120
  Transmission Date: 20130627
  Serious: Yes (Death)
  Sender: FDA-Public Use
  Company Number: US-FRI-1000040373

PATIENT
  Sex: Female

DRUGS (1)
  1. CELEXA [Suspect]
     Route: 064

REACTIONS (3)
  - Persistent foetal circulation [Fatal]
  - Diaphragmatic hernia [Fatal]
  - Multiple congenital abnormalities [Fatal]
